FAERS Safety Report 7104040-3 (Version None)
Quarter: 2010Q4

REPORT INFORMATION
  Report Type: 
  Country: None (occurrence: None)
  Receive Date: 20101115
  Receipt Date: 20100518
  Transmission Date: 20110411
  Serious: No
  Sender: FDA-Public Use
  Company Number: US-ALLERGAN-1006501US

PATIENT
  Age: 56 Year
  Sex: Female

DRUGS (1)
  1. BOTOX COSMETIC [Suspect]
     Indication: SKIN WRINKLING
     Dosage: UNK
     Dates: start: 20100505, end: 20100505

REACTIONS (3)
  - INJECTION SITE RASH [None]
  - INJECTION SITE VESICLES [None]
  - RASH PAPULAR [None]
